FAERS Safety Report 4449433-8 (Version None)
Quarter: 2004Q3

REPORT INFORMATION
  Report Type: 
  Country: None (occurrence: None)
  Receive Date: 20040913
  Receipt Date: 20040826
  Transmission Date: 20050211
  Serious: Yes (Hospitalization)
  Sender: FDA-Public Use
  Company Number: 2004AP03871

PATIENT
  Age: 76 Year
  Sex: Female

DRUGS (4)
  1. IRESSA [Suspect]
     Indication: NON-SMALL CELL LUNG CANCER
     Dosage: 250 MG DAILY PO
     Route: 048
     Dates: start: 20040708, end: 20040714
  2. IRESSA [Suspect]
     Indication: NON-SMALL CELL LUNG CANCER
     Dosage: 250 MG DAILY PO
     Route: 048
     Dates: start: 20040721
  3. LOXONIN [Concomitant]
  4. MAGNESIUM OXIDE [Concomitant]

REACTIONS (6)
  - ANAEMIA [None]
  - DISEASE PROGRESSION [None]
  - GASTRIC MUCOSAL LESION [None]
  - HYPERTENSION [None]
  - LIVER DISORDER [None]
  - PYREXIA [None]
